FAERS Safety Report 6868785-2 (Version None)
Quarter: 2010Q3

REPORT INFORMATION
  Report Type: 
  Country: None (occurrence: None)
  Receive Date: 20100722
  Receipt Date: 20080620
  Transmission Date: 20110219
  Serious: No
  Sender: FDA-Public Use
  Company Number: US-PFIZER INC-2008052111

PATIENT
  Sex: Male

DRUGS (2)
  1. CHANTIX [Suspect]
     Indication: SMOKING CESSATION THERAPY
     Dates: start: 20080101
  2. BUPROPION HYDROCHLORIDE [Concomitant]

REACTIONS (4)
  - EATING DISORDER [None]
  - GAIT DISTURBANCE [None]
  - NAUSEA [None]
  - POOR QUALITY SLEEP [None]
